FAERS Safety Report 25468261 (Version 1)
Quarter: 2025Q2

REPORT INFORMATION
  Report Type: Spontaneous
  Country: US (occurrence: None)
  Receive Date: 20250620
  Receipt Date: 20250620
  Transmission Date: 20250717
  Serious: Yes (Other)
  Sender: FDA-CTU
  Company Number: None

PATIENT
  Age: 36 Year
  Sex: Female

DRUGS (3)
  1. FERUMOXYTOL [Suspect]
     Active Substance: FERUMOXYTOL
     Indication: Iron deficiency
  2. Lisinporil [Concomitant]
  3. DEVICE [Concomitant]
     Active Substance: DEVICE

REACTIONS (1)
  - Chest pain [None]

NARRATIVE: CASE EVENT DATE: 20250620
